FAERS Safety Report 23247782 (Version 2)
Quarter: 2024Q2

REPORT INFORMATION
  Report Type: Spontaneous
  Country: US (occurrence: US)
  Receive Date: 20231130
  Receipt Date: 20240523
  Transmission Date: 20240715
  Serious: Yes (Other)
  Sender: FDA-Public Use
  Company Number: US-SA-SAC20231122000256

PATIENT
  Age: 57 Year
  Sex: Female
  Weight: 113 kg

DRUGS (3)
  1. DUPIXENT [Suspect]
     Active Substance: DUPILUMAB
     Indication: Dermatitis atopic
     Dosage: 300 MG, QOW
     Route: 058
     Dates: start: 201901, end: 202404
  2. DUPIXENT [Suspect]
     Active Substance: DUPILUMAB
     Indication: Neurodermatitis
  3. OMEPRAZOLE [Concomitant]
     Active Substance: DONEPEZIL HYDROCHLORIDE\OMEPRAZOLE\OMEPRAZOLE MAGNESIUM

REACTIONS (9)
  - Knee arthroplasty [Not Recovered/Not Resolved]
  - Eczema [Not Recovered/Not Resolved]
  - Skin exfoliation [Not Recovered/Not Resolved]
  - Exfoliative rash [Not Recovered/Not Resolved]
  - Skin discolouration [Not Recovered/Not Resolved]
  - Therapeutic response decreased [Not Recovered/Not Resolved]
  - Dermatitis atopic [Not Recovered/Not Resolved]
  - Intentional dose omission [Not Recovered/Not Resolved]
  - Therapeutic response shortened [Unknown]

NARRATIVE: CASE EVENT DATE: 20210101
